FAERS Safety Report 5152221-0 (Version None)
Quarter: 2006Q4

REPORT INFORMATION
  Report Type: 
  Country: None (occurrence: None)
  Receive Date: 20061116
  Receipt Date: 20061012
  Transmission Date: 20070319
  Serious: Yes (Other)
  Sender: FDA-Public Use
  Company Number: PHEH2006US12911

PATIENT
  Age: 59 Year
  Sex: Male

DRUGS (11)
  1. ZOMETA [Suspect]
     Indication: PROSTATE CANCER
     Dosage: 4 MG, 4WEEKS
     Dates: start: 20040916, end: 20060824
  2. DOCETAXEL [Concomitant]
     Dosage: UNK, UNK
     Dates: start: 20060501, end: 20060701
  3. PREDNISONE TAB [Concomitant]
     Dosage: UNK, UNK
     Dates: start: 20060501, end: 20060701
  4. TAXOTERE [Concomitant]
  5. DECADRON                                /CAN/ [Concomitant]
     Dosage: UNK, UNK
     Dates: start: 20060501, end: 20060701
  6. ADVICOR [Concomitant]
  7. CALCIUM [Concomitant]
  8. VITAMINS [Concomitant]
  9. WARFARIN SODIUM [Concomitant]
  10. METFORMIN [Concomitant]
  11. LUPRON [Concomitant]

REACTIONS (6)
  - BONE DISORDER [None]
  - BONE LESION [None]
  - GINGIVAL SWELLING [None]
  - GINGIVITIS [None]
  - OSTEONECROSIS [None]
  - TOOTH EXTRACTION [None]
